FAERS Safety Report 21821508 (Version 1)
Quarter: 2023Q1

REPORT INFORMATION
  Report Type: Other
  Country: None (occurrence: RO)
  Receive Date: 20230105
  Receipt Date: 20230105
  Transmission Date: 20230418
  Serious: Yes (Life-Threatening, Hospitalization, Other)
  Sender: FDA-Public Use
  Company Number: RO-ACI HealthCare Limited-2136440

PATIENT
  Age: 71 Year
  Sex: Female

DRUGS (1)
  1. TRAMADOL HYDROCHLORIDE [Suspect]
     Active Substance: TRAMADOL HYDROCHLORIDE
     Indication: Product used for unknown indication
     Route: 065

REACTIONS (2)
  - Cutaneous vasculitis [Recovering/Resolving]
  - Tubulointerstitial nephritis [Recovering/Resolving]
